FAERS Safety Report 6133772-9 (Version None)
Quarter: 2009Q1

REPORT INFORMATION
  Report Type: 
  Country: None (occurrence: None)
  Receive Date: 20090326
  Receipt Date: 20090317
  Transmission Date: 20090719
  Serious: Yes (Other)
  Sender: FDA-Public Use
  Company Number: GB-PFIZER INC-2009186584

PATIENT

DRUGS (5)
  1. CHAMPIX [Suspect]
     Indication: SMOKING CESSATION THERAPY
     Dosage: 1 MG, 2X/DAY
     Route: 048
     Dates: start: 20090201
  2. CLARITHROMYCIN [Suspect]
     Indication: HELICOBACTER INFECTION
     Dosage: 250 MG, 2X/DAY
     Route: 048
     Dates: start: 20090216
  3. METRONIDAZOLE BENZOATE [Concomitant]
     Dosage: UNK
     Route: 048
     Dates: start: 20090216
  4. OMEPRAZOLE [Concomitant]
     Dosage: UNK
     Route: 048
     Dates: start: 20090216
  5. PREMARIN [Concomitant]
     Dosage: UNK
     Route: 048
     Dates: start: 20090217

REACTIONS (5)
  - GLOSSITIS [None]
  - ORAL CANDIDIASIS [None]
  - ORAL HERPES [None]
  - STOMATITIS [None]
  - TONGUE DISORDER [None]
